FAERS Safety Report 8199253-6 (Version None)
Quarter: 2012Q1

REPORT INFORMATION
  Report Type: 
  Country: None (occurrence: None)
  Receive Date: 20120309
  Receipt Date: 20120227
  Transmission Date: 20120608
  Serious: Yes (Hospitalization, Other)
  Sender: FDA-Public Use
  Company Number: US-ELI_LILLY_AND_COMPANY-US201112005967

PATIENT
  Sex: Male

DRUGS (10)
  1. HUMALOG [Suspect]
     Dosage: 5 U, TID
     Route: 058
     Dates: start: 20110801
  2. HUMALOG [Suspect]
     Indication: TYPE 1 DIABETES MELLITUS
     Dosage: 5 U, TID
     Route: 058
     Dates: start: 20110801
  3. TEKTURNA [Concomitant]
     Dosage: UNK
  4. HUMALOG [Suspect]
     Dosage: 15 U, TID
     Route: 058
  5. LANTUS [Concomitant]
     Indication: TYPE 1 DIABETES MELLITUS
     Dosage: 30 U, EACH EVENING
  6. TESTOSTERONE [Concomitant]
     Dosage: UNK
  7. AMLODIPINE [Concomitant]
     Dosage: UNK
  8. HUMALOG [Suspect]
     Dosage: 15 U, TID
     Route: 058
  9. GLYBURIDE AND METFORMIN HYDROCHLORIDE [Concomitant]
     Dosage: UNK
  10. PLAVIX [Concomitant]
     Dosage: UNK

REACTIONS (4)
  - DRUG INEFFECTIVE [None]
  - INCORRECT STORAGE OF DRUG [None]
  - BLOOD GLUCOSE INCREASED [None]
  - PNEUMONIA [None]
